FAERS Safety Report 7457478-9 (Version None)
Quarter: 2011Q2

REPORT INFORMATION
  Report Type: 
  Country: None (occurrence: None)
  Receive Date: 20110504
  Receipt Date: 20110422
  Transmission Date: 20111010
  Serious: Yes (Other)
  Sender: FDA-Public Use
  Company Number: US-ELI_LILLY_AND_COMPANY-US201103001153

PATIENT
  Age: 62 Year
  Sex: Male

DRUGS (1)
  1. EFFIENT [Suspect]
     Indication: CORONARY ARTERIAL STENT INSERTION
     Dosage: 10 MG, QD

REACTIONS (2)
  - DRUG DOSE OMISSION [None]
  - CORONARY ARTERY DISEASE [None]
